FAERS Safety Report 7610468-5 (Version None)
Quarter: 2011Q3

REPORT INFORMATION
  Report Type: 
  Country: None (occurrence: None)
  Receive Date: 20110707
  Receipt Date: 20110621
  Transmission Date: 20111222
  Serious: Yes (Other)
  Sender: FDA-Public Use
  Company Number: TPA2011A03335

PATIENT
  Age: 71 Year
  Sex: Female

DRUGS (5)
  1. METFORMIN HCL [Concomitant]
  2. VYTORIN [Concomitant]
  3. ACTOS [Suspect]
     Indication: TYPE 2 DIABETES MELLITUS
     Dosage: 15 MG, 1 KIN 1 D, PER ORAL
     Route: 048
  4. SPIRIVA [Concomitant]
  5. AMARYL [Concomitant]

REACTIONS (1)
  - BLADDER CANCER [None]
